FAERS Safety Report 13055520 (Version 1)
Quarter: 2016Q4

REPORT INFORMATION
  Report Type: Spontaneous
  Country: JP (occurrence: JP)
  Receive Date: 20161222
  Receipt Date: 20161222
  Transmission Date: 20170207
  Serious: Yes (Other)
  Sender: FDA-Public Use
  Company Number: JP-BAUSCH-BL-2016-032163

PATIENT
  Age: 56 Year
  Sex: Male

DRUGS (2)
  1. PREDNISOLONE. [Suspect]
     Active Substance: PREDNISOLONE
     Indication: RADIATION PNEUMONITIS
     Route: 048
  2. PREDNISOLONE. [Suspect]
     Active Substance: PREDNISOLONE
     Route: 048

REACTIONS (2)
  - Varicella [Recovered/Resolved]
  - Varicella zoster pneumonia [Recovered/Resolved]
